FAERS Safety Report 7775377-X (Version None)
Quarter: 2011Q3

REPORT INFORMATION
  Report Type: 
  Country: None (occurrence: None)
  Receive Date: 20110923
  Receipt Date: 20110913
  Transmission Date: 20111222
  Serious: Yes (Other)
  Sender: FDA-Public Use
  Company Number: PHHY2011US61582

PATIENT
  Sex: Female

DRUGS (4)
  1. PRILOSEC [Concomitant]
     Dosage: UNK UKN, UNK
  2. ZANTAC [Concomitant]
     Dosage: UNK UKN, UNK
  3. TASIGNA [Suspect]
     Indication: CHRONIC MYELOID LEUKAEMIA
     Dosage: 300 MG, BID
     Route: 048
     Dates: start: 20110316
  4. AUGMENTIN '125' [Concomitant]
     Indication: PHARYNGITIS
     Dosage: UNK UKN, UNK

REACTIONS (11)
  - DIZZINESS [None]
  - GENERALISED ERYTHEMA [None]
  - PRURITUS GENERALISED [None]
  - NAUSEA [None]
  - LUNG DISORDER [None]
  - FATIGUE [None]
  - DECREASED APPETITE [None]
  - PHARYNGITIS STREPTOCOCCAL [None]
  - HEADACHE [None]
  - GASTROOESOPHAGEAL REFLUX DISEASE [None]
  - BODY TEMPERATURE FLUCTUATION [None]
